FAERS Safety Report 6735954-1 (Version None)
Quarter: 2010Q2

REPORT INFORMATION
  Report Type: 
  Country: None (occurrence: None)
  Receive Date: 20100521
  Receipt Date: 20100513
  Transmission Date: 20101027
  Serious: Yes (Hospitalization)
  Sender: FDA-Public Use
  Company Number: B0653194A

PATIENT
  Age: 13 Month
  Sex: Female

DRUGS (5)
  1. AUGMENTIN '125' [Suspect]
     Indication: COUGH
     Dosage: 2.5ML THREE TIMES PER DAY
     Route: 065
     Dates: start: 20100318, end: 20100323
  2. LINEX [Concomitant]
  3. UNKNOWN DRUG [Concomitant]
  4. CLARITIN [Concomitant]
  5. DEXAMETHASONE [Concomitant]
     Dosage: 4MG TWICE PER DAY

REACTIONS (1)
  - RASH PAPULAR [None]
